FAERS Safety Report 9067018 (Version 1)
Quarter: 2013Q1

REPORT INFORMATION
  Report Type: Spontaneous
  Country: ES (occurrence: ES)
  Receive Date: 20130214
  Receipt Date: 20130214
  Transmission Date: 20140127
  Serious: Yes (Hospitalization)
  Sender: FDA-Public Use
  Company Number: ES-JNJFOC-20130112830

PATIENT
  Age: 84 Year
  Sex: Female

DRUGS (1)
  1. STELARA [Suspect]
     Indication: PSORIASIS
     Dosage: RECEIVED THREE ADMINISTRATIONS IN TOTAL
     Route: 058
     Dates: start: 20120731, end: 20130109

REACTIONS (2)
  - Dermatitis exfoliative [Recovered/Resolved]
  - Psoriasis [Recovered/Resolved]
